FAERS Safety Report 15661920 (Version 1)
Quarter: 2018Q4

REPORT INFORMATION
  Report Type: Report from Study
  Country: US (occurrence: US)
  Receive Date: 20181127
  Receipt Date: 20181127
  Transmission Date: 20190205
  Serious: No
  Sender: FDA-Public Use
  Company Number: PHHY2018US166584

PATIENT
  Sex: Male

DRUGS (11)
  1. AMANTADINE. [Interacting]
     Active Substance: AMANTADINE HYDROCHLORIDE
     Dosage: 1 DF, QD (AT BEDTIME)
     Route: 048
  2. AMANTADINE. [Interacting]
     Active Substance: AMANTADINE HYDROCHLORIDE
     Indication: DYSKINESIA
     Dosage: 1 DF, QD (AT BEDTIME)
     Route: 048
     Dates: start: 20180901, end: 20180907
  3. ASPIRIN. [Concomitant]
     Active Substance: ASPIRIN
     Indication: PRODUCT USED FOR UNKNOWN INDICATION
     Dosage: UNK
     Route: 065
  4. ROPINIROLE. [Concomitant]
     Active Substance: ROPINIROLE
     Indication: PRODUCT USED FOR UNKNOWN INDICATION
     Dosage: UNK
     Route: 065
  5. HYDROXYZINE HYDROCHLORIDE. [Concomitant]
     Active Substance: HYDROXYZINE HYDROCHLORIDE
     Indication: PRODUCT USED FOR UNKNOWN INDICATION
     Dosage: UNK
     Route: 065
  6. STALEVO [Suspect]
     Active Substance: CARBIDOPA\ENTACAPONE\LEVODOPA
     Indication: PRODUCT USED FOR UNKNOWN INDICATION
     Dosage: UNK, Q6H  (LEVODOPA 150 MG, CARBIDOPA 37.5, ENTACAPONE 200 MG)
     Route: 065
  7. AMANTADINE. [Interacting]
     Active Substance: AMANTADINE HYDROCHLORIDE
     Dosage: 1 DF, QD (AT BEDTIME)
     Route: 048
     Dates: start: 20180908
  8. AMANTADINE. [Interacting]
     Active Substance: AMANTADINE HYDROCHLORIDE
     Dosage: 1 DF, QD (AT BEDTIME)
     Route: 048
  9. DILTIAZEM. [Concomitant]
     Active Substance: DILTIAZEM
     Indication: PRODUCT USED FOR UNKNOWN INDICATION
     Dosage: 100 MG, QD
     Route: 065
  10. ATENOLOL. [Concomitant]
     Active Substance: ATENOLOL
     Indication: PRODUCT USED FOR UNKNOWN INDICATION
     Dosage: UNK
     Route: 065
  11. FUROSEMIDE. [Concomitant]
     Active Substance: FUROSEMIDE
     Indication: PRODUCT USED FOR UNKNOWN INDICATION
     Dosage: UNK
     Route: 065

REACTIONS (19)
  - Muscular weakness [Unknown]
  - Malaise [Unknown]
  - Dysstasia [Unknown]
  - Fatigue [Unknown]
  - Gait inability [Unknown]
  - Fall [Unknown]
  - Therapeutic response shortened [Unknown]
  - Drug interaction [Unknown]
  - Joint swelling [Unknown]
  - Hallucination, visual [Not Recovered/Not Resolved]
  - Dyskinesia [Recovered/Resolved]
  - Peripheral swelling [Unknown]
  - Insomnia [Unknown]
  - Limb discomfort [Recovering/Resolving]
  - Initial insomnia [Unknown]
  - Gait disturbance [Unknown]
  - Visual impairment [Unknown]
  - Hypotension [Unknown]
  - Fear-related avoidance of activities [Not Recovered/Not Resolved]
